FAERS Safety Report 4514096-X (Version None)
Quarter: 2004Q4

REPORT INFORMATION
  Report Type: 
  Country: None (occurrence: None)
  Receive Date: 20041124
  Receipt Date: 20010801
  Transmission Date: 20050328
  Serious: Yes (Other)
  Sender: FDA-Public Use
  Company Number: US_010260126

PATIENT
  Age: 74 Year
  Sex: Male
  Weight: 69 kg

DRUGS (15)
  1. HUMATROPE [Suspect]
     Indication: GROWTH HORMONE DEFICIENCY
     Dosage: 0.2 MG/DAY
     Dates: start: 20001030
  2. HUMATROPE [Suspect]
     Indication: HYPOPITUITARISM
     Dosage: 0.2 MG/DAY
     Dates: start: 20001030
  3. DESMOPRESSIN [Concomitant]
  4. HYDROCORTISONE [Concomitant]
  5. SYNTHROID [Concomitant]
  6. ANDRODERM [Concomitant]
  7. SULINDAC [Concomitant]
  8. TYLENOL [Concomitant]
  9. LOMOTIL [Concomitant]
  10. ALBUTEROL [Concomitant]
  11. SEREVENT [Concomitant]
  12. ZESTRIL [Concomitant]
  13. ASPIRIN [Concomitant]
  14. DESONIDE [Concomitant]
  15. FLOVENT [Concomitant]

REACTIONS (3)
  - BASAL CELL CARCINOMA [None]
  - MALIGNANT NEOPLASM OF EYELID [None]
  - RECURRENT CANCER [None]
